FAERS Safety Report 19926251 (Version 2)
Quarter: 2022Q3

REPORT INFORMATION
  Report Type: Spontaneous
  Country: KR (occurrence: KR)
  Receive Date: 20211006
  Receipt Date: 20220715
  Transmission Date: 20221027
  Serious: Yes (Death)
  Sender: FDA-Public Use
  Company Number: KR-GUERBET-KR-20210021

PATIENT
  Age: 46 Year
  Sex: Male

DRUGS (5)
  1. LIPIODOL [Suspect]
     Active Substance: ETHIODIZED OIL
     Indication: Therapeutic embolisation
     Dosage: HISTOACRYL AND LIPIODOL MIXTURE AT RATIO OF 1:3
     Route: 013
  2. HISTOACRYL [Suspect]
     Active Substance: ENBUCRILATE
     Indication: Therapeutic embolisation
     Dosage: HISTOACRYL AND LIPIODOL MIXTURE AT RATIO OF 1:3
     Route: 013
  3. GELFOAM [Concomitant]
     Active Substance: GELATIN\THROMBIN HUMAN
     Indication: Therapeutic embolisation
     Route: 013
  4. FUROSEMIDE [Concomitant]
     Active Substance: FUROSEMIDE
     Indication: Ascites
     Route: 065
  5. SPIRONOLACTONE [Concomitant]
     Active Substance: SPIRONOLACTONE
     Indication: Ascites
     Route: 065

REACTIONS (1)
  - Disseminated intravascular coagulation [Fatal]
